FAERS Safety Report 23469707 (Version 1)
Quarter: 2024Q1

REPORT INFORMATION
  Report Type: Other
  Country: US (occurrence: None)
  Receive Date: 20240202
  Receipt Date: 20240202
  Transmission Date: 20240409
  Serious: Yes (Other)
  Sender: FDA-Public Use
  Company Number: US-ROCHE-3501468

PATIENT
  Age: 73 Year
  Sex: Male

DRUGS (6)
  1. TECENTRIQ [Suspect]
     Active Substance: ATEZOLIZUMAB
     Indication: Malignant melanoma
     Dosage: VIAL, ON DAY(S) 1 AND DAY(S) 15 EVERY 28 DAY(S)
     Route: 041
  2. TECENTRIQ [Suspect]
     Active Substance: ATEZOLIZUMAB
     Indication: Neoplasm malignant
  3. COTELLIC [Suspect]
     Active Substance: COBIMETINIB
     Indication: Malignant melanoma
     Dosage: TAKE 3 TABLET(S) BY MOUTH DAILY FOR 21 DAYS AND THEN HAVE 7 DAY BREAK, EVERY 28 DAYS.
     Route: 048
  4. COTELLIC [Suspect]
     Active Substance: COBIMETINIB
     Indication: Neoplasm malignant
  5. ZELBORAF [Suspect]
     Active Substance: VEMURAFENIB
     Indication: Malignant melanoma
     Dosage: TAKE 3 TABLET(S) BY MOUTH TWICE A DAY
     Route: 048
  6. ZELBORAF [Suspect]
     Active Substance: VEMURAFENIB
     Indication: Neoplasm malignant

REACTIONS (1)
  - Malignant neoplasm progression [Unknown]
